FAERS Safety Report 7865593-0 (Version None)
Quarter: 2011Q4

REPORT INFORMATION
  Report Type: 
  Country: None (occurrence: None)
  Receive Date: 20111028
  Receipt Date: 20110120
  Transmission Date: 20120403
  Serious: No
  Sender: FDA-Public Use
  Company Number: US-GLAXOSMITHKLINE-A0907729A

PATIENT
  Age: 62 Year
  Sex: Female

DRUGS (9)
  1. NITRO-DUR [Concomitant]
  2. ASPIRIN [Concomitant]
  3. ALBUTEROL [Concomitant]
  4. DUONEB [Concomitant]
  5. METOPROLOL TARTRATE [Concomitant]
  6. ADVAIR DISKUS 100/50 [Suspect]
     Indication: ASTHMA
     Dosage: 1PUFF PER DAY
     Route: 055
     Dates: start: 20110119, end: 20110120
  7. MORPHINE [Concomitant]
  8. NORVASC [Concomitant]
  9. PREDNISONE [Concomitant]

REACTIONS (3)
  - HEART RATE INCREASED [None]
  - PALPITATIONS [None]
  - BLOOD PRESSURE INCREASED [None]
